FAERS Safety Report 10630121 (Version 2)
Quarter: 2014Q4

REPORT INFORMATION
  Report Type: Spontaneous
  Country: US (occurrence: US)
  Receive Date: 20141205
  Receipt Date: 20141205
  Transmission Date: 20150529
  Serious: No
  Sender: FDA-Public Use
  Company Number: US-BRISTOL-MYERS SQUIBB COMPANY-21369723

PATIENT
  Age: 79 Year
  Sex: Male
  Weight: 106.12 kg

DRUGS (1)
  1. ELIQUIS [Suspect]
     Active Substance: APIXABAN
     Dates: start: 201406

REACTIONS (3)
  - Vision blurred [Unknown]
  - Headache [Unknown]
  - Temporomandibular joint syndrome [Unknown]
